FAERS Safety Report 9991693 (Version 1)
Quarter: 2014Q1

REPORT INFORMATION
  Report Type: Spontaneous
  Country: JP (occurrence: JP)
  Receive Date: 20140310
  Receipt Date: 20140310
  Transmission Date: 20141002
  Serious: Yes (Other)
  Sender: FDA-Public Use
  Company Number: JP-PFIZER INC-2014067257

PATIENT
  Age: 59 Year
  Sex: Male

DRUGS (6)
  1. CELECOX [Suspect]
     Dosage: 200 MG, DAILY
     Route: 048
     Dates: start: 20140216, end: 20140217
  2. TAKEPRON [Suspect]
     Dosage: 15 MG, DAILY
     Route: 048
     Dates: start: 20140214, end: 20140219
  3. NEXIUM [Concomitant]
     Dosage: UNK
     Dates: start: 20140220
  4. VOLTAREN [Concomitant]
     Dosage: UNK
     Dates: start: 20140219, end: 20140219
  5. VOLTAREN [Concomitant]
     Dosage: UNK
     Dates: start: 20140210, end: 20140213
  6. PREDONINE [Concomitant]
     Dosage: UNK
     Dates: start: 20140220

REACTIONS (5)
  - Oculogyric crisis [Recovered/Resolved]
  - Accommodation disorder [Recovered/Resolved]
  - Amnesia [Recovered/Resolved]
  - Depressed level of consciousness [Recovered/Resolved]
  - Pyrexia [Recovered/Resolved]
